FAERS Safety Report 16551321 (Version 3)
Quarter: 2019Q4

REPORT INFORMATION
  Report Type: Spontaneous
  Country: JP (occurrence: JP)
  Receive Date: 20190710
  Receipt Date: 20191025
  Transmission Date: 20200122
  Serious: Yes (Hospitalization, Other)
  Sender: FDA-Public Use
  Company Number: JP-BRISTOL-MYERS SQUIBB COMPANY-BMS-2019-066762

PATIENT
  Age: 70 Year
  Sex: Female
  Weight: 50 kg

DRUGS (10)
  1. BEPRICOR [Concomitant]
     Active Substance: BEPRIDIL
     Indication: ATRIAL FIBRILLATION
     Dosage: 50 MILLIGRAM, BID
     Route: 048
     Dates: start: 201811
  2. INSULIN GLARGINE RECOMBINANT [Concomitant]
     Active Substance: INSULIN GLARGINE
     Indication: DIABETES MELLITUS
     Dosage: 50 ABSENT, QD
     Route: 058
  3. NEXIUM I.V. [Concomitant]
     Active Substance: ESOMEPRAZOLE SODIUM
     Indication: PRODUCT USED FOR UNKNOWN INDICATION
     Dosage: 20 MILLIGRAM, QD
     Route: 048
  4. LIPACREON [Concomitant]
     Active Substance: PANCRELIPASE
     Indication: PRODUCT USED FOR UNKNOWN INDICATION
     Dosage: 150 MILLIGRAM, TID
     Route: 048
  5. URSODEOXYCHOLIC ACID [Concomitant]
     Active Substance: URSODIOL
     Indication: PRODUCT USED FOR UNKNOWN INDICATION
     Dosage: 100 MILLIGRAM, TID
     Route: 048
  6. HUMALOG [Concomitant]
     Active Substance: INSULIN LISPRO
     Indication: DIABETES MELLITUS
     Dosage: 3 UNIT, TID
     Route: 058
  7. PREDONINE [Concomitant]
     Active Substance: PREDNISOLONE
     Indication: BLOOD IMMUNOGLOBULIN G
     Dosage: 2.5 MILLIGRAM, QD
     Route: 065
     Dates: start: 201603
  8. ELIQUIS [Suspect]
     Active Substance: APIXABAN
     Indication: CEREBROVASCULAR ACCIDENT PROPHYLAXIS
     Dosage: 5 MILLIGRAM, BID
     Route: 048
     Dates: start: 201505, end: 201902
  9. BISOPROLOL [Concomitant]
     Active Substance: BISOPROLOL
     Indication: ATRIAL FIBRILLATION
     Dosage: 2.5 MILLIGRAM, QD
     Route: 048
     Dates: start: 201505
  10. ALENDRONATE SODIUM HYDRATE [Concomitant]
     Active Substance: ALENDRONATE SODIUM
     Indication: PRODUCT USED FOR UNKNOWN INDICATION
     Dosage: 35 MILLIGRAM, QD
     Route: 048

REACTIONS (7)
  - Immunoglobulin G4 related disease [Unknown]
  - Autoimmune pancreatitis [Not Recovered/Not Resolved]
  - Cerebellar infarction [Recovered/Resolved with Sequelae]
  - Atrial fibrillation [Recovered/Resolved]
  - Mechanical ileus [Recovered/Resolved]
  - Gastric cancer [Recovered/Resolved]
  - Cholangitis sclerosing [Not Recovered/Not Resolved]

NARRATIVE: CASE EVENT DATE: 201508
